FAERS Safety Report 10181298 (Version 1)
Quarter: 2014Q2

REPORT INFORMATION
  Report Type: Spontaneous
  Country: US (occurrence: US)
  Receive Date: 20140519
  Receipt Date: 20140519
  Transmission Date: 20141212
  Serious: No
  Sender: FDA-Public Use
  Company Number: US-AMGEN INC.-USASP2014032815

PATIENT
  Age: 55 Year
  Sex: Female

DRUGS (3)
  1. PROLIA [Suspect]
     Indication: OSTEOPOROSIS POSTMENOPAUSAL
     Dosage: UNK
     Route: 065
     Dates: start: 201404
  2. DICLOFENAC [Concomitant]
  3. CITALOPRAM                         /00582602/ [Concomitant]
     Dosage: 40 MG, QD

REACTIONS (3)
  - Pain [Unknown]
  - Skin burning sensation [Unknown]
  - Arthralgia [Unknown]
